FAERS Safety Report 6639667-6 (Version None)
Quarter: 2010Q1

REPORT INFORMATION
  Report Type: 
  Country: None (occurrence: None)
  Receive Date: 20100318
  Receipt Date: 20100309
  Transmission Date: 20100710
  Serious: Yes (Death, Life-Threatening, Hospitalization)
  Sender: FDA-Public Use
  Company Number: JP-BAYER-200813019BYL

PATIENT
  Age: 77 Year
  Sex: Male
  Weight: 65 kg

DRUGS (15)
  1. NEXAVAR [Suspect]
     Indication: RENAL CELL CARCINOMA
     Dosage: TOTAL DAILY DOSE: 800 MG  UNIT DOSE: 200 MG
     Route: 048
     Dates: start: 20081023, end: 20081202
  2. CEROCRAL [Concomitant]
     Dosage: UNIT DOSE: 10 MG
     Route: 048
     Dates: end: 20081209
  3. TENORMIN [Concomitant]
     Dosage: UNIT DOSE: 50 MG
     Route: 048
     Dates: end: 20081209
  4. CANDESARTAN CILEXETIL [Concomitant]
     Dosage: UNIT DOSE: 4 MG
     Route: 048
     Dates: end: 20081209
  5. VASOLAN [Concomitant]
     Route: 042
     Dates: start: 20081215, end: 20081215
  6. VASOLAN [Concomitant]
     Route: 048
     Dates: end: 20081209
  7. WARFARIN SODIUM [Concomitant]
     Dosage: UNIT DOSE: 1 MG
     Route: 048
     Dates: start: 20081031, end: 20081202
  8. WARFARIN SODIUM [Concomitant]
     Dosage: UNIT DOSE: 1 MG
     Route: 048
     Dates: start: 20081028, end: 20081030
  9. WARFARIN SODIUM [Concomitant]
     Dosage: UNIT DOSE: 1 MG
     Route: 048
     Dates: end: 20081027
  10. PASTARON [Concomitant]
     Indication: PROPHYLAXIS
     Route: 061
     Dates: start: 20081023
  11. LASIX [Concomitant]
     Indication: URINE OUTPUT DECREASED
     Route: 042
     Dates: start: 20081203, end: 20081215
  12. FERRUM [Concomitant]
     Dosage: SINCE BEFORE ADMINISTRATION
     Route: 048
     Dates: end: 20081109
  13. URSO 250 [Concomitant]
     Dosage: UNIT DOSE: 100 MG
     Route: 048
     Dates: end: 20081109
  14. URSO 250 [Concomitant]
     Dosage: 400-600MG/DAY
     Route: 048
     Dates: start: 20081206, end: 20081216
  15. FAMOTIDINE [Concomitant]
     Indication: PROPHYLAXIS
     Dosage: UNIT DOSE: 20 MG
     Route: 042
     Dates: start: 20081208, end: 20081216

REACTIONS (14)
  - BLOOD AMYLASE INCREASED [None]
  - BLOOD URIC ACID INCREASED [None]
  - CONSTIPATION [None]
  - DECREASED APPETITE [None]
  - DISSEMINATED INTRAVASCULAR COAGULATION [None]
  - HEPATIC FAILURE [None]
  - HEPATIC FUNCTION ABNORMAL [None]
  - HEPATIC ISCHAEMIA [None]
  - HYPOALBUMINAEMIA [None]
  - HYPOPHOSPHATAEMIA [None]
  - LIPASE INCREASED [None]
  - MALAISE [None]
  - PALMAR-PLANTAR ERYTHRODYSAESTHESIA SYNDROME [None]
  - RASH [None]
